FAERS Safety Report 4994943-8 (Version None)
Quarter: 2006Q2

REPORT INFORMATION
  Report Type: 
  Country: None (occurrence: None)
  Receive Date: 20060503
  Receipt Date: 20060420
  Transmission Date: 20061013
  Serious: Yes (Other)
  Sender: FDA-Public Use
  Company Number: 224291

PATIENT
  Age: 79 Year
  Sex: Male
  Weight: 63.5 kg

DRUGS (3)
  1. AVASTIN [Suspect]
     Indication: PANCREATIC CARCINOMA
     Dosage: 952 MG, Q3W, INTRAVENOUS
     Route: 042
     Dates: start: 20060124, end: 20060328
  2. GEMCITABINE [Suspect]
     Indication: PANCREATIC CARCINOMA
     Dosage: 1700 MG, 1/WEEK, INTRAVENOUS
     Route: 042
     Dates: start: 20060124, end: 20060328
  3. CAPECITABINE (CAPECITABINE) [Suspect]
     Indication: PANCREATIC CARCINOMA
     Dosage: 2150 MG, ORAL
     Route: 048
     Dates: start: 20060124, end: 20060410

REACTIONS (2)
  - BLOOD CULTURE POSITIVE [None]
  - STAPHYLOCOCCAL INFECTION [None]
